FAERS Safety Report 6215139-8 (Version None)
Quarter: 2009Q2

REPORT INFORMATION
  Report Type: 
  Country: None (occurrence: None)
  Receive Date: 20090604
  Receipt Date: 20090319
  Transmission Date: 20091009
  Serious: No
  Sender: FDA-Public Use
  Company Number: US-ASTRAZENECA-2009UW07144

PATIENT
  Age: 71 Year
  Sex: Female

DRUGS (1)
  1. OMEPRAZOLE [Suspect]
     Route: 048
     Dates: end: 20090310

REACTIONS (1)
  - REGURGITATION [None]
